FAERS Safety Report 26001828 (Version 1)
Quarter: 2025Q4

REPORT INFORMATION
  Report Type: Spontaneous
  Country: US (occurrence: US)
  Receive Date: 20251105
  Receipt Date: 20251105
  Transmission Date: 20260117
  Serious: No
  Sender: MERCK SHARP & DOHME LLC
  Company Number: US-009507513-2342808

PATIENT
  Sex: Female

DRUGS (1)
  1. KEYTRUDA [Suspect]
     Active Substance: PEMBROLIZUMAB
     Indication: Endometrial cancer
     Route: 065

REACTIONS (2)
  - Constipation [Unknown]
  - Drug ineffective [Unknown]
